FAERS Safety Report 12388514 (Version 3)
Quarter: 2016Q2

REPORT INFORMATION
  Report Type: Report from Study
  Country: US (occurrence: US)
  Receive Date: 20160520
  Receipt Date: 20160610
  Transmission Date: 20160815
  Serious: Yes (Death, Hospitalization, Other)
  Sender: FDA-Public Use
  Company Number: US-GILEAD-2016-0214532

PATIENT
  Age: 64 Year
  Sex: Female
  Weight: 62.59 kg

DRUGS (21)
  1. GLUCOSAMINE [Concomitant]
     Active Substance: GLUCOSAMINE
  2. POLYETHYLENE GLYCOL 3350. [Concomitant]
     Active Substance: POLYETHYLENE GLYCOL 3350
  3. LEVOTHYROXINE. [Concomitant]
     Active Substance: LEVOTHYROXINE
  4. PSYLLIUM SEED W/DEXTROSE [Concomitant]
  5. BIOTIN [Concomitant]
     Active Substance: BIOTIN
  6. COMBIVENT [Concomitant]
     Active Substance: ALBUTEROL SULFATE\IPRATROPIUM BROMIDE
  7. ACETAMINOPHEN. [Concomitant]
     Active Substance: ACETAMINOPHEN
  8. ALBUTEROL SULFATE W/IPRATROPIUM BROMIDE [Concomitant]
     Active Substance: ALBUTEROL SULFATE\IPRATROPIUM BROMIDE
  9. FLUTICASONE FUROATE W/VILANTEROL [Concomitant]
     Active Substance: FLUTICASONE FUROATE\VILANTEROL TRIFENATATE
  10. OXYGEN. [Concomitant]
     Active Substance: OXYGEN
  11. DIGOXIN. [Concomitant]
     Active Substance: DIGOXIN
  12. TIOTROPIUM BROMIDE [Concomitant]
     Active Substance: TIOTROPIUM BROMIDE
  13. FLUTICASONE [Concomitant]
     Active Substance: FLUTICASONE\FLUTICASONE PROPIONATE
  14. RANITIDINE. [Concomitant]
     Active Substance: RANITIDINE
  15. VERAPAMIL [Concomitant]
     Active Substance: VERAPAMIL HYDROCHLORIDE
  16. AMBRISENTAN [Suspect]
     Active Substance: AMBRISENTAN
     Indication: PRODUCT USED FOR UNKNOWN INDICATION
     Dosage: 10 MG, UNK
     Route: 065
  17. DIPHENHYDRAMINE. [Concomitant]
     Active Substance: DIPHENHYDRAMINE
  18. IBUPROFEN. [Concomitant]
     Active Substance: IBUPROFEN
  19. PREDNISONE. [Concomitant]
     Active Substance: PREDNISONE
  20. MULTIVITAMIN                       /00097801/ [Concomitant]
     Active Substance: VITAMINS
  21. PHENYLEPHRINE [Concomitant]
     Active Substance: PHENYLEPHRINE\PHENYLEPHRINE HYDROCHLORIDE

REACTIONS (1)
  - Lung transplant [Fatal]

NARRATIVE: CASE EVENT DATE: 20160510
